FAERS Safety Report 22832839 (Version 3)
Quarter: 2023Q4

REPORT INFORMATION
  Report Type: Spontaneous
  Country: JP (occurrence: JP)
  Receive Date: 20230817
  Receipt Date: 20231103
  Transmission Date: 20240110
  Serious: Yes (Hospitalization)
  Sender: FDA-Public Use
  Company Number: JP-MYOVANT SCIENCES GMBH-2023MYSCI0800302

PATIENT
  Age: 49 Year
  Sex: Female

DRUGS (3)
  1. RELUGOLIX [Suspect]
     Active Substance: RELUGOLIX
     Indication: Heavy menstrual bleeding
     Dosage: 40 MILLIGRAM, QD
     Route: 048
     Dates: start: 20221017, end: 20230112
  2. DIENOGEST [Concomitant]
     Active Substance: DIENOGEST
     Indication: Heavy menstrual bleeding
     Dosage: 2 MILLIGRAM, QD
     Route: 048
     Dates: start: 20210908, end: 20221016
  3. DIENOGEST [Concomitant]
     Active Substance: DIENOGEST
     Dosage: 2 MILLIGRAM, QD
     Route: 048
     Dates: start: 20230106

REACTIONS (1)
  - Cerebral infarction [Recovering/Resolving]

NARRATIVE: CASE EVENT DATE: 20230112
